FAERS Safety Report 14750396 (Version 1)
Quarter: 2018Q2

REPORT INFORMATION
  Report Type: Spontaneous
  Country: ES (occurrence: ES)
  Receive Date: 20180412
  Receipt Date: 20180412
  Transmission Date: 20180711
  Serious: Yes (Death)
  Sender: FDA-Public Use
  Company Number: ES-B.I. PHARMACEUTICALS,INC./RIDGEFIELD-2018-BI-019517

PATIENT
  Sex: Female

DRUGS (2)
  1. PRAXBIND [Suspect]
     Active Substance: IDARUCIZUMAB
     Indication: HAEMATOMA
  2. PRAXBIND [Suspect]
     Active Substance: IDARUCIZUMAB
     Indication: HIP FRACTURE
     Route: 065

REACTIONS (1)
  - Death [Fatal]
